FAERS Safety Report 8205888-4 (Version None)
Quarter: 2012Q1

REPORT INFORMATION
  Report Type: 
  Country: None (occurrence: None)
  Receive Date: 20120306
  Receipt Date: 20120229
  Transmission Date: 20120608
  Serious: Yes (Life-Threatening)
  Sender: FDA-Public Use
  Company Number: 2012SP011574

PATIENT
  Age: 34 Year
  Sex: Female

DRUGS (1)
  1. IMPLANON [Suspect]
     Indication: CONTRACEPTION
     Dosage: 1 DF, SBDE
     Route: 059
     Dates: start: 20090701

REACTIONS (5)
  - HAEMORRHAGE [None]
  - HEPATIC NEOPLASM MALIGNANT [None]
  - MIGRAINE [None]
  - GALLBLADDER DISORDER [None]
  - ACNE [None]
